FAERS Safety Report 7270699-3 (Version None)
Quarter: 2011Q1

REPORT INFORMATION
  Report Type: 
  Country: None (occurrence: None)
  Receive Date: 20110202
  Receipt Date: 20110127
  Transmission Date: 20110831
  Serious: Yes (Hospitalization)
  Sender: FDA-Public Use
  Company Number: B0696355A

PATIENT
  Sex: Male

DRUGS (13)
  1. SINTROM [Concomitant]
     Dosage: 4MG UNKNOWN
     Route: 065
  2. LANZOR [Concomitant]
     Route: 065
  3. TOPLEXIL [Suspect]
     Indication: BRONCHITIS
     Dosage: 1UNIT THREE TIMES PER DAY
     Route: 048
     Dates: start: 20110115, end: 20110116
  4. METEOSPASMYL [Concomitant]
     Route: 065
  5. TANAKAN [Concomitant]
     Route: 065
  6. BURINEX [Concomitant]
     Dosage: 1MG UNKNOWN
     Route: 065
  7. ACETAMINOPHEN [Suspect]
     Indication: BRONCHITIS
     Dosage: 3G THREE TIMES PER DAY
     Route: 048
     Dates: start: 20110115, end: 20110116
  8. ELISOR [Concomitant]
     Route: 065
  9. CARDENSIEL [Concomitant]
     Dosage: 2.5UNIT UNKNOWN
     Route: 065
  10. TAREG [Concomitant]
     Dosage: 40UNIT UNKNOWN
     Route: 065
  11. ART [Concomitant]
     Dosage: 50UNIT UNKNOWN
     Route: 065
  12. CLAMOXYL [Suspect]
     Indication: BRONCHITIS
     Dosage: 1G THREE TIMES PER DAY
     Route: 048
     Dates: start: 20110115, end: 20110117
  13. MOTILIUM [Suspect]
     Indication: BRONCHITIS
     Dosage: 10MG SINGLE DOSE
     Route: 048
     Dates: start: 20110115, end: 20110115

REACTIONS (3)
  - GRANULOCYTES MATURATION ARREST [None]
  - PYREXIA [None]
  - AGRANULOCYTOSIS [None]
